FAERS Safety Report 5146758-8 (Version None)
Quarter: 2006Q4

REPORT INFORMATION
  Report Type: 
  Country: None (occurrence: None)
  Receive Date: 20061102
  Receipt Date: 20061018
  Transmission Date: 20070319
  Serious: Yes (Hospitalization)
  Sender: FDA-Public Use
  Company Number: 2006BI015031

PATIENT
  Sex: Female
  Weight: 122.4712 kg

DRUGS (9)
  1. AVONEX [Suspect]
     Indication: MULTIPLE SCLEROSIS
     Dosage: 30 UG; QW; IM
     Route: 030
     Dates: start: 19990101, end: 20030101
  2. AVONEX [Suspect]
     Indication: MULTIPLE SCLEROSIS
     Dosage: 30 UG; QW; IM
     Route: 030
     Dates: start: 20030101
  3. BYETTA [Concomitant]
  4. METFORMIN [Concomitant]
  5. GLYBURIDE [Concomitant]
  6. HYDROCHLOROTHIAZIDE [Concomitant]
  7. QUINAPRIL [Concomitant]
  8. ZANAFLEX [Concomitant]
  9. AMANTADINE HCL [Concomitant]

REACTIONS (8)
  - ANXIETY [None]
  - ARTHRALGIA [None]
  - CARTILAGE INJURY [None]
  - GAIT DISTURBANCE [None]
  - INSOMNIA [None]
  - RESORPTION BONE INCREASED [None]
  - SCLERODERMA [None]
  - THYROID DISORDER [None]
